FAERS Safety Report 16500630 (Version 5)
Quarter: 2020Q1

REPORT INFORMATION
  Report Type: Spontaneous
  Country: US (occurrence: US)
  Receive Date: 20190701
  Receipt Date: 20200127
  Transmission Date: 20200409
  Serious: Yes (Other)
  Sender: FDA-Public Use
  Company Number: US-PFIZER INC-2019269094

PATIENT
  Age: 45 Year
  Sex: Female
  Weight: 105.2 kg

DRUGS (2)
  1. LYRICA [Suspect]
     Active Substance: PREGABALIN
     Indication: FIBROMYALGIA
     Dosage: 100 MG, 3X/DAY
     Route: 048
  2. LYRICA [Suspect]
     Active Substance: PREGABALIN
     Indication: AUTOIMMUNE INNER EAR DISEASE
     Dosage: 100 MG, 1X/DAY
     Route: 048
     Dates: start: 20190611

REACTIONS (8)
  - Nausea [Unknown]
  - Intracranial aneurysm [Not Recovered/Not Resolved]
  - Withdrawal syndrome [Unknown]
  - Intentional product use issue [Unknown]
  - Osteoporosis [Not Recovered/Not Resolved]
  - Drug ineffective [Unknown]
  - Blindness [Unknown]
  - Deafness [Unknown]

NARRATIVE: CASE EVENT DATE: 2015
